FAERS Safety Report 10379713 (Version 1)
Quarter: 2014Q3

REPORT INFORMATION
  Report Type: Spontaneous
  Country: IT (occurrence: IT)
  Receive Date: 20140812
  Receipt Date: 20140812
  Transmission Date: 20150326
  Serious: Yes (Other)
  Sender: FDA-Public Use
  Company Number: IT-ALLERGAN-1417220US

PATIENT
  Age: 85 Year

DRUGS (4)
  1. AZOPT [Concomitant]
     Active Substance: BRINZOLAMIDE
  2. BRIMONIDINE [Concomitant]
     Active Substance: BRIMONIDINE\BRIMONIDINE TARTRATE
  3. GANFORT [Suspect]
     Active Substance: BIMATOPROST\TIMOLOL
     Indication: GLAUCOMA
     Dosage: 1 DF, QD
     Route: 047
     Dates: start: 20140601, end: 20140619
  4. POLASE [Concomitant]
     Active Substance: MAGNESIUM ASPARTATE\POTASSIUM ASPARTATE
     Dosage: DAILY
     Route: 048

REACTIONS (4)
  - Presyncope [Recovering/Resolving]
  - Balance disorder [Recovering/Resolving]
  - Bradycardia [Recovering/Resolving]
  - Vision blurred [Recovering/Resolving]

NARRATIVE: CASE EVENT DATE: 20140619
